FAERS Safety Report 9150278 (Version 1)
Quarter: 2013Q1

REPORT INFORMATION
  Report Type: Spontaneous
  Country: US (occurrence: US)
  Receive Date: 20130308
  Receipt Date: 20130308
  Transmission Date: 20140127
  Serious: No
  Sender: FDA-Public Use
  Company Number: US-009507513-1303USA003484

PATIENT
  Age: 25 Year
  Sex: Female
  Weight: 102.95 kg

DRUGS (1)
  1. NUVARING [Suspect]
     Indication: CONTRACEPTION
     Dosage: 1 RING FOR 3 CONTINUOUS WEEKS FOLLOWED BY  1 RING FREE WEEK

REACTIONS (1)
  - Chlamydial infection [Not Recovered/Not Resolved]
